FAERS Safety Report 7094381-0 (Version None)
Quarter: 2010Q4

REPORT INFORMATION
  Report Type: 
  Country: None (occurrence: None)
  Receive Date: 20101110
  Receipt Date: 20101104
  Transmission Date: 20110411
  Serious: Yes (Other)
  Sender: FDA-Public Use
  Company Number: US-ENDO PHARMACEUTICALS INC.-OPIR20100044

PATIENT
  Age: 39 Year
  Sex: Male

DRUGS (3)
  1. OPANA [Suspect]
     Indication: DRUG ABUSE
     Dosage: UNK
  2. OPANA [Suspect]
  3. OPANA ER [Suspect]
     Dosage: UNK

REACTIONS (1)
  - DRUG DEPENDENCE [None]
